FAERS Safety Report 9167818 (Version 1)
Quarter: 2013Q1

REPORT INFORMATION
  Report Type: Spontaneous
  Country: MX (occurrence: MX)
  Receive Date: 20130318
  Receipt Date: 20130318
  Transmission Date: 20140127
  Serious: Yes (Death, Hospitalization)
  Sender: FDA-Public Use
  Company Number: PHHY2013MX025925

PATIENT
  Age: 68 Year
  Sex: Male

DRUGS (5)
  1. EXELON PATCH [Suspect]
     Indication: DEMENTIA ALZHEIMER^S TYPE
     Dosage: 9.5 MG, DAILY
     Route: 062
     Dates: start: 201009, end: 201103
  2. RIVOTRIL [Concomitant]
     Dosage: 1 DF, DAILY
     Dates: start: 201001, end: 201103
  3. ATEMPERATOR//VALPROIC ACID [Concomitant]
     Dosage: 6 DF, DAILY
     Dates: start: 201005, end: 201103
  4. RISPERDAL [Concomitant]
     Dosage: 1 DF, DAILY
     Dates: start: 201006, end: 201103
  5. EPAMIN [Concomitant]
     Dosage: 3 DF, DAILY
     Dates: start: 201006, end: 201103

REACTIONS (1)
  - Pneumonia [Fatal]
